FAERS Safety Report 12082644 (Version 1)
Quarter: 2016Q1

REPORT INFORMATION
  Report Type: Spontaneous
  Country: US (occurrence: None)
  Receive Date: 20160212
  Receipt Date: 20160212
  Transmission Date: 20160526
  Serious: Yes (Life-Threatening, Hospitalization)
  Sender: FDA-Public Use
  Company Number: None

PATIENT
  Age: 15 Year
  Sex: Male

DRUGS (18)
  1. LEVETIRACETAM. [Concomitant]
     Active Substance: LEVETIRACETAM
  2. MOVANTIK [Suspect]
     Active Substance: NALOXEGOL OXALATE
     Indication: CONSTIPATION
     Dosage: 2 PILLS  QD ORAL
     Route: 048
     Dates: start: 20151221, end: 20160206
  3. AZITHROMYCIN ANHYDROUS. [Concomitant]
     Active Substance: AZITHROMYCIN ANHYDROUS
  4. BUDESONIDE. [Concomitant]
     Active Substance: BUDESONIDE
  5. CALCIUM [Concomitant]
     Active Substance: CALCIUM
  6. CODEINE [Concomitant]
     Active Substance: CODEINE
  7. ERGOCALCIFEROL. [Concomitant]
     Active Substance: ERGOCALCIFEROL
  8. FLUTICASONE [Concomitant]
     Active Substance: FLUTICASONE\FLUTICASONE PROPIONATE
  9. DILANTIN [Concomitant]
     Active Substance: PHENYTOIN
  10. LEVOTHYROXINE. [Concomitant]
     Active Substance: LEVOTHYROXINE
  11. CLONAZEPAM. [Concomitant]
     Active Substance: CLONAZEPAM
  12. PHENOBARBITAL. [Concomitant]
     Active Substance: PHENOBARBITAL
  13. FOLIC ACID. [Concomitant]
     Active Substance: FOLIC ACID
  14. POLYETH GLYCOL 3350 NF POWDER [Concomitant]
  15. RANITIDINE [Concomitant]
     Active Substance: RANITIDINE\RANITIDINE HYDROCHLORIDE
  16. SOD CHLORIDE [Concomitant]
  17. MUPIROCIN. [Concomitant]
     Active Substance: MUPIROCIN
  18. VIMPAT [Concomitant]
     Active Substance: LACOSAMIDE

REACTIONS (4)
  - Loss of consciousness [None]
  - Cardiac arrest [None]
  - Respiratory arrest [None]
  - Pulse absent [None]

NARRATIVE: CASE EVENT DATE: 20160206
